FAERS Safety Report 11222945 (Version 1)
Quarter: 2015Q2

REPORT INFORMATION
  Report Type: Spontaneous
  Country: US (occurrence: US)
  Receive Date: 20150626
  Receipt Date: 20150626
  Transmission Date: 20150821
  Serious: Yes (Other)
  Sender: FDA-Public Use
  Company Number: US-ELI_LILLY_AND_COMPANY-US201506008708

PATIENT
  Sex: Male

DRUGS (1)
  1. HUMULIN 70/30 [Suspect]
     Active Substance: INSULIN HUMAN
     Indication: DIABETES MELLITUS
     Dosage: UNK
     Route: 065
     Dates: start: 1997

REACTIONS (5)
  - Drug ineffective [Unknown]
  - Renal pain [Recovering/Resolving]
  - Back pain [Recovering/Resolving]
  - Blood glucose increased [Unknown]
  - Deep vein thrombosis [Unknown]
